FAERS Safety Report 17407779 (Version 1)
Quarter: 2020Q1

REPORT INFORMATION
  Report Type: Spontaneous
  Country: US (occurrence: US)
  Receive Date: 20200212
  Receipt Date: 20200212
  Transmission Date: 20200409
  Serious: No
  Sender: FDA-Public Use
  Company Number: US-PFIZER INC-2020058922

PATIENT
  Age: 65 Year
  Sex: Female
  Weight: 65.76 kg

DRUGS (3)
  1. PREMARIN [Suspect]
     Active Substance: ESTROGENS, CONJUGATED
     Indication: ENDOMETRIOSIS
     Dosage: 1.25 MG, 1X/DAY
     Route: 048
  2. VITAMIN B12 [Concomitant]
     Active Substance: CYANOCOBALAMIN
     Dosage: UNK [SHOTS, EVERY OTHER WEEK]
  3. SINGULAIR [Concomitant]
     Active Substance: MONTELUKAST SODIUM
     Indication: ASTHMA
     Dosage: UNK

REACTIONS (5)
  - Off label use [Unknown]
  - Oropharyngeal pain [Unknown]
  - Sneezing [Unknown]
  - Product use in unapproved indication [Unknown]
  - Nasopharyngitis [Unknown]
